FAERS Safety Report 10351794 (Version 3)
Quarter: 2019Q3

REPORT INFORMATION
  Report Type: Spontaneous
  Country: US (occurrence: US)
  Receive Date: 20140730
  Receipt Date: 20190902
  Transmission Date: 20191004
  Serious: Yes (Hospitalization, Other)
  Sender: FDA-Public Use
  Company Number: US-PFIZER INC-2014209815

PATIENT
  Age: 41 Year
  Sex: Female
  Weight: 81.63 kg

DRUGS (2)
  1. RELPAX [Suspect]
     Active Substance: ELETRIPTAN HYDROBROMIDE
     Indication: HEADACHE
  2. RELPAX [Suspect]
     Active Substance: ELETRIPTAN HYDROBROMIDE
     Indication: MIGRAINE
     Dosage: 40 MG, AS NEEDED (WHENEVER REQUIRED SHE TOOK IT FOR TWO TIMES A DAY)
     Route: 048
     Dates: start: 2008

REACTIONS (4)
  - Fibromyalgia [Unknown]
  - Back disorder [Unknown]
  - Foot fracture [Unknown]
  - Drug ineffective [Unknown]

NARRATIVE: CASE EVENT DATE: 20090322
